FAERS Safety Report 9724057 (Version 2)
Quarter: 2014Q1

REPORT INFORMATION
  Report Type: Spontaneous
  Country: US (occurrence: US)
  Receive Date: 20131202
  Receipt Date: 20140102
  Transmission Date: 20141002
  Serious: No
  Sender: FDA-Public Use
  Company Number: US-AMGEN-USASP2013078308

PATIENT
  Age: 81 Year
  Sex: Male

DRUGS (9)
  1. ENBREL [Suspect]
     Indication: PSORIATIC ARTHROPATHY
     Dosage: UNK
     Route: 065
  2. FUROSEMIDE [Concomitant]
     Dosage: UNK
  3. SIMVASTIN [Concomitant]
     Dosage: UNK
  4. AMLODIPINE [Concomitant]
     Dosage: UNK
  5. AVODART [Concomitant]
     Dosage: UNK
  6. CLONIDINE [Concomitant]
     Dosage: UNK
  7. IRBESARTAN [Concomitant]
     Dosage: UNK
  8. HYTRIN [Concomitant]
     Dosage: UNK
  9. ALFUZOSIN [Concomitant]
     Dosage: UNK

REACTIONS (1)
  - Pruritus generalised [Unknown]
